FAERS Safety Report 8397494-6 (Version None)
Quarter: 2012Q2

REPORT INFORMATION
  Report Type: 
  Country: None (occurrence: None)
  Receive Date: 20120529
  Receipt Date: 20120529
  Transmission Date: 20120825
  Serious: Yes (Other)
  Sender: FDA-Public Use
  Company Number: None

PATIENT
  Sex: Female

DRUGS (1)
  1. AVONEX [Suspect]
     Dosage: 30 MCG INJECTABLE WEEKLY
     Dates: start: 20120425, end: 20120524

REACTIONS (2)
  - DISEASE PROGRESSION [None]
  - GAIT DISTURBANCE [None]
